FAERS Safety Report 25646238 (Version 1)
Quarter: 2025Q3

REPORT INFORMATION
  Report Type: Report from Study
  Country: US (occurrence: US)
  Receive Date: 20250805
  Receipt Date: 20250805
  Transmission Date: 20251021
  Serious: Yes (Hospitalization)
  Sender: VERTEX
  Company Number: US-VERTEX PHARMACEUTICALS-2025-012819

PATIENT
  Age: 19 Year
  Sex: Male

DRUGS (8)
  1. TRIKAFTA [Suspect]
     Active Substance: ELEXACAFTOR\IVACAFTOR\TEZACAFTOR
     Indication: Cystic fibrosis
     Dosage: 2 TABLETS IN THE MORNING AND 1 TABLET IN THE EVENING
     Route: 048
     Dates: start: 202203
  2. AZITHROMYCIN [Concomitant]
     Active Substance: AZITHROMYCIN
     Route: 048
  3. PULMOZYME [Concomitant]
     Active Substance: DORNASE ALFA
  4. ALBUTEROL SULFATE [Concomitant]
     Active Substance: ALBUTEROL SULFATE
  5. SODIUM CHLORIDE [Concomitant]
     Active Substance: SODIUM CHLORIDE
  6. TOBRAMYCIN [Concomitant]
     Active Substance: TOBRAMYCIN
  7. ZENPEP [Concomitant]
     Active Substance: PANCRELIPASE AMYLASE\PANCRELIPASE LIPASE\PANCRELIPASE PROTEASE
     Route: 048
  8. Oralyte [Concomitant]
     Route: 048

REACTIONS (2)
  - Infective pulmonary exacerbation of cystic fibrosis [Not Recovered/Not Resolved]
  - Upper respiratory tract infection [Not Recovered/Not Resolved]

NARRATIVE: CASE EVENT DATE: 20250721
